FAERS Safety Report 14627058 (Version 2)
Quarter: 2018Q1

REPORT INFORMATION
  Report Type: Report from Study
  Country: FR (occurrence: FR)
  Receive Date: 20180312
  Receipt Date: 20180330
  Transmission Date: 20180509
  Serious: Yes (Hospitalization, Other)
  Sender: FDA-Public Use
  Company Number: PHHY2017FR117428

PATIENT
  Age: 58 Year
  Sex: Female
  Weight: 68 kg

DRUGS (7)
  1. SIGNIFOR [Suspect]
     Active Substance: PASIREOTIDE
     Indication: PITUITARY-DEPENDENT CUSHING^S SYNDROME
     Dosage: 0.9 MG, BID
     Route: 058
     Dates: start: 20170222, end: 20170530
  2. COVERSYL [Concomitant]
     Active Substance: PERINDOPRIL
     Indication: HYPERTENSION
     Dosage: 2.5 MG, QD
     Route: 048
     Dates: start: 20170220
  3. SIGNIFOR [Suspect]
     Active Substance: PASIREOTIDE
     Dosage: UNK
     Route: 058
     Dates: start: 20170531
  4. HYDROCORTISONE. [Concomitant]
     Active Substance: HYDROCORTISONE
     Indication: PITUITARY-DEPENDENT CUSHING^S SYNDROME
     Dosage: 10 MG, QD
     Route: 048
     Dates: start: 20170327
  5. CREON [Concomitant]
     Active Substance: PANCRELIPASE AMYLASE\PANCRELIPASE LIPASE\PANCRELIPASE PROTEASE
     Indication: DIARRHOEA
     Dosage: 25000 UNK, BID
     Route: 048
     Dates: start: 20170404
  6. CRESTOR [Concomitant]
     Active Substance: ROSUVASTATIN CALCIUM
     Indication: DYSLIPIDAEMIA
     Dosage: 5 MG, Q48H
     Route: 048
     Dates: start: 20100802
  7. LEVOTHYROX [Concomitant]
     Active Substance: LEVOTHYROXINE
     Indication: PRODUCT USED FOR UNKNOWN INDICATION
     Route: 065

REACTIONS (5)
  - Spondylolisthesis [Recovered/Resolved]
  - Back pain [Unknown]
  - Condition aggravated [Recovered/Resolved]
  - Adrenal insufficiency [Recovered/Resolved]
  - Oedema peripheral [Unknown]

NARRATIVE: CASE EVENT DATE: 20170418
